FAERS Safety Report 9921749 (Version 1)
Quarter: 2014Q1

REPORT INFORMATION
  Report Type: Spontaneous
  Country: US (occurrence: US)
  Receive Date: 20140225
  Receipt Date: 20140225
  Transmission Date: 20141002
  Serious: Yes (Other)
  Sender: FDA-Public Use
  Company Number: US-MYLANLABS-2014S1003235

PATIENT
  Sex: Female
  Weight: 77.11 kg

DRUGS (7)
  1. DOXYCYCLINE TABLETS [Suspect]
     Indication: IDIOPATHIC ANGIOEDEMA
     Route: 048
  2. DOXYCYCLINE TABLETS [Suspect]
     Indication: DEFORMITY
     Route: 048
  3. DOXYCYCLINE TABLETS [Suspect]
     Indication: MASS
     Route: 048
  4. DOXYCYCLINE TABLETS [Suspect]
     Indication: FLUSHING
     Route: 048
  5. DOXYCYCLINE TABLETS [Suspect]
     Indication: IDIOPATHIC URTICARIA
     Route: 048
  6. DOXYCYCLINE TABLETS [Suspect]
     Indication: SKIN DISCOLOURATION
     Route: 048
  7. DOXYCYCLINE TABLETS [Suspect]
     Indication: OFF LABEL USE
     Route: 048

REACTIONS (9)
  - Drug ineffective [Not Recovered/Not Resolved]
  - Idiopathic angioedema [Not Recovered/Not Resolved]
  - Deformity [Not Recovered/Not Resolved]
  - Mass [Not Recovered/Not Resolved]
  - Flushing [Not Recovered/Not Resolved]
  - Idiopathic urticaria [Not Recovered/Not Resolved]
  - Skin discolouration [Not Recovered/Not Resolved]
  - Pyrexia [Recovered/Resolved]
  - Oropharyngeal pain [Recovered/Resolved]
